FAERS Safety Report 14053671 (Version 1)
Quarter: 2017Q4

REPORT INFORMATION
  Report Type: Spontaneous
  Country: US (occurrence: None)
  Receive Date: 20171006
  Receipt Date: 20171006
  Transmission Date: 20180321
  Serious: No
  Sender: FDA-Public Use
  Company Number: None

PATIENT
  Age: 59 Year
  Sex: Female

DRUGS (17)
  1. CITRACAL [Concomitant]
     Active Substance: CALCIUM CITRATE
  2. NASONEX [Concomitant]
     Active Substance: MOMETASONE FUROATE
  3. FENOFIBRATE. [Concomitant]
     Active Substance: FENOFIBRATE
  4. LASIX [Concomitant]
     Active Substance: FUROSEMIDE
  5. OCALIVA [Suspect]
     Active Substance: OBETICHOLIC ACID
     Indication: BILIARY CIRRHOSIS PRIMARY
     Route: 048
     Dates: start: 20170719
  6. BUDESONIDE. [Concomitant]
     Active Substance: BUDESONIDE
  7. CENTRUM SILV [Concomitant]
  8. SUPER B COMPLEX [Concomitant]
     Active Substance: CYANOCOBALAMIN\DEXPANTHENOL\NIACINAMIDE\PYRIDOXINE HYDROCHLORIDE\RIBOFLAVIN 5^-PHOSPHATE SODIUM\THIAMINE HYDROCHLORIDE\VITAMIN B COMPLEX
  9. URSO FORTE [Concomitant]
     Active Substance: URSODIOL
  10. ULTRAM [Concomitant]
     Active Substance: TRAMADOL HYDROCHLORIDE
  11. NEXIUM [Concomitant]
     Active Substance: ESOMEPRAZOLE MAGNESIUM
  12. VITAMIN D3 [Concomitant]
     Active Substance: CHOLECALCIFEROL
  13. VITAMIN E [Concomitant]
     Active Substance: .ALPHA.-TOCOPHEROL
  14. POTASSIUM [Concomitant]
     Active Substance: POTASSIUM
  15. SOMA [Concomitant]
     Active Substance: CARISOPRODOL
  16. VIVELLE-DOT [Concomitant]
     Active Substance: ESTRADIOL
  17. ZYRTEC [Concomitant]
     Active Substance: CETIRIZINE HYDROCHLORIDE

REACTIONS (1)
  - Nephrolithiasis [None]

NARRATIVE: CASE EVENT DATE: 20170930
